FAERS Safety Report 8359879-3 (Version None)
Quarter: 2012Q2

REPORT INFORMATION
  Report Type: 
  Country: None (occurrence: None)
  Receive Date: 20120515
  Receipt Date: 20120509
  Transmission Date: 20120825
  Serious: Yes (Hospitalization)
  Sender: FDA-Public Use
  Company Number: PHHY2012NL032264

PATIENT
  Sex: Male
  Weight: 80 kg

DRUGS (11)
  1. TOBI [Suspect]
  2. VERAPAMIL [Concomitant]
  3. ASCAL [Concomitant]
  4. ONBREZ [Concomitant]
  5. PREDNISONE [Concomitant]
  6. PANTOPRAZOLE [Concomitant]
  7. TOBI [Suspect]
     Indication: PSEUDOMONAS INFECTION
     Dosage: 4 DF, BID
     Dates: start: 20120313, end: 20120325
  8. ALVESCO [Concomitant]
  9. PERINDOPRIL ERBUMINE [Concomitant]
  10. LASIX [Concomitant]
  11. SPIRIVA [Concomitant]

REACTIONS (3)
  - SPUTUM INCREASED [None]
  - DYSPNOEA [None]
  - COUGH [None]
